FAERS Safety Report 17639328 (Version 1)
Quarter: 2020Q2

REPORT INFORMATION
  Report Type: Spontaneous
  Country: US (occurrence: US)
  Receive Date: 20200407
  Receipt Date: 20200407
  Transmission Date: 20200713
  Serious: Yes (Other)
  Sender: FDA-Public Use
  Company Number: NVSC2020US094011

PATIENT
  Age: 63 Year
  Sex: Male

DRUGS (2)
  1. QUINIDINE [Suspect]
     Active Substance: QUINIDINE
     Indication: VENTRICULAR FIBRILLATION
     Dosage: UNK UNK, (QUINIDINE GLUCONATE ER)QD
     Route: 065
  2. QUINIDINE [Suspect]
     Active Substance: QUINIDINE
     Dosage: UNK (QUINIDINE SULFATE)
     Route: 065

REACTIONS (1)
  - Angioedema [Unknown]
